FAERS Safety Report 8928970 (Version 1)
Quarter: 2012Q4

REPORT INFORMATION
  Report Type: 
  Country: CA (occurrence: CA)
  Receive Date: 20121127
  Receipt Date: 20121127
  Transmission Date: 20130627
  Serious: Yes (Other)
  Sender: FDA-Public Use
  Company Number: CA-ABBOTT-02P-028-0750537-00

PATIENT
  Sex: Male

DRUGS (2)
  1. FLUVOXAMINE [Suspect]
     Indication: MATERNAL EXPOSURE TIMING UNSPECIFIED
     Dosage: Daily Dose: 150 mg. Frequency:Unknown
     Route: 064
  2. FLUVOXAMINE [Suspect]
     Dosage: Daily Dose: 150 mg. Frequency:Unknown
     Route: 063

REACTIONS (5)
  - Alopecia [Unknown]
  - Eczema [Unknown]
  - Neutrophil count increased [Unknown]
  - Foetal exposure during pregnancy [Unknown]
  - Exposure during breast feeding [Unknown]
